FAERS Safety Report 16690260 (Version 2)
Quarter: 2019Q3

REPORT INFORMATION
  Report Type: Spontaneous
  Country: US (occurrence: US)
  Receive Date: 20190809
  Receipt Date: 20190820
  Transmission Date: 20191004
  Serious: Yes (Life-Threatening, Hospitalization)
  Sender: FDA-Public Use
  Company Number: US-VIFOR (INTERNATIONAL) INC.-VIT-2019-07829

PATIENT
  Age: 35 Year
  Sex: Male

DRUGS (1)
  1. MIRCERA [Suspect]
     Active Substance: METHOXY POLYETHYLENE GLYCOL-EPOETIN BETA
     Indication: NEPHROGENIC ANAEMIA
     Route: 040
     Dates: start: 20190725, end: 20190725

REACTIONS (10)
  - Angioedema [Recovered/Resolved]
  - Wheezing [Unknown]
  - Anaphylactic reaction [Recovered/Resolved]
  - Restlessness [Unknown]
  - Peripheral swelling [Unknown]
  - Pruritus [Unknown]
  - Urticaria [Unknown]
  - Anxiety [Unknown]
  - Blood pressure decreased [Unknown]
  - Heart rate increased [Unknown]

NARRATIVE: CASE EVENT DATE: 20190725
